FAERS Safety Report 7919265-4 (Version None)
Quarter: 2011Q4

REPORT INFORMATION
  Report Type: 
  Country: None (occurrence: None)
  Receive Date: 20111114
  Receipt Date: 20111104
  Transmission Date: 20120403
  Serious: Yes (Death, Hospitalization, Other)
  Sender: FDA-Public Use
  Company Number: AUR-APL-2011-04768

PATIENT
  Age: 90 Year
  Sex: Female
  Weight: 63.5 kg

DRUGS (8)
  1. METFORMIN HCL [Concomitant]
  2. NAMENDA [Concomitant]
  3. NORVASC [Suspect]
     Indication: HYPERTENSION
     Dosage: (5 MG, 1 D), ORAL
     Route: 048
     Dates: start: 20110809
  4. NORVASC [Suspect]
     Indication: LABORATORY TEST ABNORMAL
     Dosage: (5 MG, 1 D), ORAL
     Route: 048
     Dates: start: 20110809
  5. NORVASC [Suspect]
     Indication: DRUG INTOLERANCE
     Dosage: (5 MG, 1 D), ORAL
     Route: 048
     Dates: start: 20110809
  6. METOPROLOL TARTRATE [Concomitant]
  7. LISINOPRIL AND HYDROCHLOROTHIAZIDE [Suspect]
     Indication: HYPERTENSION
     Dosage: 10/12.5 MG (MG, 1 D), ORAL
     Route: 048
     Dates: end: 20110101
  8. DONEPEZIL HCL [Concomitant]

REACTIONS (6)
  - GAIT DISTURBANCE [None]
  - SOMNOLENCE [None]
  - AIR EMBOLISM [None]
  - FEELING ABNORMAL [None]
  - FATIGUE [None]
  - HEMIPARESIS [None]
